FAERS Safety Report 4825274-4 (Version None)
Quarter: 2005Q4

REPORT INFORMATION
  Report Type: 
  Country: None (occurrence: None)
  Receive Date: 20051110
  Receipt Date: 20051110
  Transmission Date: 20060501
  Serious: Yes (Other)
  Sender: FDA-Public Use
  Company Number: None

PATIENT
  Sex: Male

DRUGS (2)
  1. AREDIA [Suspect]
     Indication: MULTIPLE MYELOMA
     Dates: start: 20020101, end: 20041201
  2. ZOMETA [Suspect]
     Indication: STEM CELL TRANSPLANT
     Dates: start: 20030101, end: 20041201

REACTIONS (3)
  - OSTEONECROSIS [None]
  - TOOTH DECALCIFICATION [None]
  - TOOTH FRACTURE [None]
